FAERS Safety Report 23489208 (Version 1)
Quarter: 2024Q1

REPORT INFORMATION
  Report Type: Spontaneous
  Country: US (occurrence: US)
  Receive Date: 20240206
  Receipt Date: 20240206
  Transmission Date: 20240410
  Serious: No
  Sender: FDA-Public Use
  Company Number: US-SANDOZ-SDZ2024US011756

PATIENT
  Sex: Female

DRUGS (1)
  1. OMNITROPE [Suspect]
     Active Substance: SOMATROPIN
     Indication: Product used for unknown indication
     Dosage: 0.4 MG
     Route: 058

REACTIONS (4)
  - Gait disturbance [Unknown]
  - Fall [Unknown]
  - Product use issue [Unknown]
  - Product dose omission issue [Unknown]
